FAERS Safety Report 10381397 (Version 1)
Quarter: 2014Q1

REPORT INFORMATION
  Report Type: Spontaneous
  Country: US (occurrence: None)
  Receive Date: 20140306
  Receipt Date: 20140306
  Transmission Date: 20141002
  Serious: Yes (Disabling)
  Sender: FDA-Public Use
  Company Number: 163-21880-13024269

PATIENT
  Age: 61 Year
  Sex: Female

DRUGS (5)
  1. REVLIMID (LENALIDOMIDE) (CAPSULES) [Suspect]
     Indication: PLASMA CELL MYELOMA
     Dosage: 21 IN 28 D
     Route: 048
     Dates: start: 20090105, end: 20090129
  2. ZOMETA (ZOLEDRONIC ACID) [Concomitant]
  3. DEXAMETHASONE [Concomitant]
  4. PLATELETS [Concomitant]
  5. PRBC (BLOOD CELLS, PACKED HUMAN) [Concomitant]

REACTIONS (4)
  - Pancytopenia [None]
  - Full blood count decreased [None]
  - Neutrophil count decreased [None]
  - Plasma cell myeloma [None]
